FAERS Safety Report 14142900 (Version 1)
Quarter: 2017Q4

REPORT INFORMATION
  Report Type: Spontaneous
  Country: NO (occurrence: NO)
  Receive Date: 20171030
  Receipt Date: 20171030
  Transmission Date: 20180321
  Serious: Yes (Death)
  Sender: FDA-Public Use
  Company Number: NO-JNJFOC-20171032959

PATIENT
  Age: 60 Year
  Sex: Female

DRUGS (6)
  1. INFLIXIMAB, RECOMBINANT [Suspect]
     Active Substance: INFLIXIMAB
     Indication: PRODUCT USED FOR UNKNOWN INDICATION
     Route: 042
     Dates: start: 20170914
  2. PREDNISOLONE. [Suspect]
     Active Substance: PREDNISOLONE
     Indication: ADRENAL INSUFFICIENCY
     Dosage: ADRENAL CORTEX INSUFF. SINCE MAY HIGH-DOSE DUE TO NIVOLUMAB- INDUCED PNEUMONITIS
     Route: 048
     Dates: start: 201705
  3. FLORINEF ACETATE [Concomitant]
     Active Substance: FLUDROCORTISONE ACETATE
     Indication: ADRENAL INSUFFICIENCY
     Route: 048
  4. NIVOLUMAB [Concomitant]
     Active Substance: NIVOLUMAB
     Indication: METASTASES TO CENTRAL NERVOUS SYSTEM
     Dosage: WITH BRAIN METASTASIS
     Route: 040
     Dates: start: 2015
  5. PREDNISOLONE. [Suspect]
     Active Substance: PREDNISOLONE
     Indication: PNEUMONITIS CHEMICAL
     Dosage: ADRENAL CORTEX INSUFF. SINCE MAY HIGH-DOSE DUE TO NIVOLUMAB- INDUCED PNEUMONITIS
     Route: 048
     Dates: start: 201705
  6. LEVAXIN [Concomitant]
     Active Substance: LEVOTHYROXINE SODIUM
     Indication: ADRENAL INSUFFICIENCY
     Route: 048

REACTIONS (4)
  - Hypotension [Fatal]
  - Pneumonia pneumococcal [Fatal]
  - Leukopenia [Fatal]
  - Sepsis [Fatal]

NARRATIVE: CASE EVENT DATE: 20170924
